FAERS Safety Report 5509818-5 (Version None)
Quarter: 2007Q4

REPORT INFORMATION
  Report Type: 
  Country: None (occurrence: None)
  Receive Date: 20071108
  Receipt Date: 20071029
  Transmission Date: 20080405
  Serious: Yes (Other)
  Sender: FDA-Public Use
  Company Number: IT-NOVOPROD-266271

PATIENT

DRUGS (4)
  1. NOVORAPID FLEXPEN [Suspect]
     Indication: TYPE 1 DIABETES MELLITUS
     Dates: end: 20070605
  2. AXAGON                             /01479301/ [Concomitant]
  3. SYMBICORT [Concomitant]
  4. FLIXONASE [Concomitant]

REACTIONS (2)
  - MEDICAL DEVICE COMPLICATION [None]
  - METABOLIC DISORDER [None]
